FAERS Safety Report 23773886 (Version 1)
Quarter: 2024Q2

REPORT INFORMATION
  Report Type: Spontaneous
  Country: US (occurrence: US)
  Receive Date: 20240423
  Receipt Date: 20240423
  Transmission Date: 20240716
  Serious: No
  Sender: FDA-Public Use
  Company Number: US-HALEON-2167909

PATIENT
  Sex: Male

DRUGS (1)
  1. TUMS SMOOTHIES [Suspect]
     Active Substance: CALCIUM CARBONATE
     Indication: Mineral supplementation
     Dosage: PROBABLY ABOUT 15 A DAY

REACTIONS (3)
  - Product use in unapproved indication [Unknown]
  - Drug effective for unapproved indication [Unknown]
  - Incorrect dose administered [Unknown]
